FAERS Safety Report 17723414 (Version 3)
Quarter: 2020Q3

REPORT INFORMATION
  Report Type: Spontaneous
  Country: US (occurrence: US)
  Receive Date: 20200429
  Receipt Date: 20200701
  Transmission Date: 20201102
  Serious: Yes (Other)
  Sender: FDA-Public Use
  Company Number: US-PFIZER INC-2020170425

PATIENT
  Age: 75 Year
  Sex: Female

DRUGS (1)
  1. XELJANZ XR [Suspect]
     Active Substance: TOFACITINIB CITRATE
     Indication: PSORIATIC ARTHROPATHY
     Dosage: 11 MG, DAILY
     Route: 048

REACTIONS (8)
  - Pain [Unknown]
  - Herpes ophthalmic [Unknown]
  - Product dose omission issue [Unknown]
  - Condition aggravated [Unknown]
  - Arthralgia [Unknown]
  - Hypoacusis [Unknown]
  - Gait disturbance [Unknown]
  - Pain in extremity [Unknown]
